FAERS Safety Report 16297061 (Version 1)
Quarter: 2019Q2

REPORT INFORMATION
  Report Type: Spontaneous
  Country: DE (occurrence: DE)
  Receive Date: 20190510
  Receipt Date: 20190510
  Transmission Date: 20190711
  Serious: Yes (Life-Threatening, Hospitalization, Disabling, Other)
  Sender: FDA-Public Use
  Company Number: DE-ACCORD-126641

PATIENT
  Age: 74 Year
  Sex: Female
  Weight: 65 kg

DRUGS (15)
  1. MYOCHOLINE GLENWOOD [Concomitant]
     Dosage: STRENGTH 25 MG
     Route: 048
  2. ESTRIFAM [Concomitant]
     Active Substance: ESTRADIOL
     Dosage: STRENGTH 2 MG
     Route: 048
  3. METOCLOPRAMIDE. [Concomitant]
     Active Substance: METOCLOPRAMIDE
     Indication: NAUSEA
     Route: 048
  4. AMLODIPINE [Concomitant]
     Active Substance: AMLODIPINE BESYLATE
     Route: 048
  5. KEVATRIL [Concomitant]
     Active Substance: GRANISETRON HYDROCHLORIDE
     Dosage: STRENGTH 2 MG
     Route: 048
     Dates: start: 20180803
  6. EMEND [Concomitant]
     Active Substance: APREPITANT
     Dosage: STRENGTH 80 MG
     Route: 048
     Dates: start: 20180803
  7. PANTOPRAZOLE [Concomitant]
     Active Substance: PANTOPRAZOLE
     Route: 048
  8. VINORELBINE [Suspect]
     Active Substance: VINORELBINE\VINORELBINE TARTRATE
     Indication: CHEMOTHERAPY
     Route: 042
     Dates: start: 20180803
  9. CISPLATIN. [Suspect]
     Active Substance: CISPLATIN
     Indication: CHEMOTHERAPY
     Route: 042
     Dates: start: 20180803
  10. ZOPICLONE [Concomitant]
     Active Substance: ZOPICLONE
     Route: 048
  11. JODID [Concomitant]
     Active Substance: IODINE
     Indication: HYPOTHYROIDISM
     Route: 048
  12. DUAKLIR GENUAIR [Concomitant]
     Active Substance: ACLIDINIUM BROMIDE\FORMOTEROL FUMARATE
     Dosage: STRENGTH 340 MICROGRAMS / 12 MICROGRAMS
     Route: 055
  13. LISINOPRIL. [Concomitant]
     Active Substance: LISINOPRIL
     Route: 048
  14. METOPROLOL. [Concomitant]
     Active Substance: METOPROLOL
     Route: 048
  15. ONDANSETRON [Concomitant]
     Active Substance: ONDANSETRON
     Indication: NAUSEA
     Route: 048

REACTIONS (4)
  - Gastrointestinal necrosis [Recovered/Resolved with Sequelae]
  - Peritonitis [Recovered/Resolved with Sequelae]
  - Serositis [Not Recovered/Not Resolved]
  - Acute abdomen [Recovered/Resolved with Sequelae]

NARRATIVE: CASE EVENT DATE: 2018
